FAERS Safety Report 5853147-7 (Version None)
Quarter: 2008Q3

REPORT INFORMATION
  Report Type: 
  Country: None (occurrence: None)
  Receive Date: 20080821
  Receipt Date: 20080806
  Transmission Date: 20090109
  Serious: No
  Sender: FDA-Public Use
  Company Number: US-BOEHRINGER INGELHEIM GMBH, GERMANY-2008-BP-10201BP

PATIENT
  Sex: Female
  Weight: 75 kg

DRUGS (13)
  1. SPIRIVA [Suspect]
     Indication: CHRONIC OBSTRUCTIVE PULMONARY DISEASE
     Dates: start: 20051201
  2. SPIRIVA [Suspect]
     Indication: ASTHMA
  3. SPIRIVA [Suspect]
     Indication: DYSPNOEA
  4. ATROVENT HFA [Concomitant]
     Indication: DYSPNOEA
  5. NEXIUM [Concomitant]
  6. FOSAMAX [Concomitant]
  7. TOPAL [Concomitant]
  8. ALEVE [Concomitant]
  9. ASMANEX TWISTHALER [Concomitant]
  10. COMBIVENT [Concomitant]
  11. WELLBUTRIN [Concomitant]
  12. ALBUTEROL [Concomitant]
  13. CEBETRA [Concomitant]

REACTIONS (2)
  - HEADACHE [None]
  - NERVOUSNESS [None]
